FAERS Safety Report 13000940 (Version 1)
Quarter: 2016Q4

REPORT INFORMATION
  Report Type: Spontaneous
  Country: RU (occurrence: RU)
  Receive Date: 20161206
  Receipt Date: 20161206
  Transmission Date: 20170207
  Serious: Yes (Hospitalization)
  Sender: FDA-Public Use
  Company Number: RU-ASTRAZENECA-2016SF27288

PATIENT
  Age: 59 Year
  Sex: Female
  Weight: 84 kg

DRUGS (8)
  1. CONCOR [Concomitant]
     Active Substance: BISOPROLOL FUMARATE
  2. ATORVASTATIN [Concomitant]
     Active Substance: ATORVASTATIN
  3. ENAP [Concomitant]
     Active Substance: ENALAPRIL
  4. HYPOTHIAZIDI [Concomitant]
  5. BRILINTA [Suspect]
     Active Substance: TICAGRELOR
     Indication: STENT PLACEMENT
     Route: 048
     Dates: start: 20151130
  6. LISINOPRIL. [Concomitant]
     Active Substance: LISINOPRIL
  7. METOPROLOL. [Concomitant]
     Active Substance: METOPROLOL
  8. AMLODIPIN [Concomitant]
     Active Substance: AMLODIPINE BESYLATE

REACTIONS (5)
  - Acute coronary syndrome [Unknown]
  - Blood pressure increased [Not Recovered/Not Resolved]
  - Chest pain [Unknown]
  - Epistaxis [Unknown]
  - Dyspnoea [Unknown]

NARRATIVE: CASE EVENT DATE: 20160927
